FAERS Safety Report 17907043 (Version 2)
Quarter: 2020Q2

REPORT INFORMATION
  Report Type: Spontaneous
  Country: US (occurrence: US)
  Receive Date: 20200617
  Receipt Date: 20200618
  Transmission Date: 20200714
  Serious: No
  Sender: FDA-Public Use
  Company Number: US-PFIZER INC-2020234582

PATIENT
  Age: 70 Year
  Sex: Female
  Weight: 90.26 kg

DRUGS (2)
  1. SUTENT [Suspect]
     Active Substance: SUNITINIB MALATE
     Indication: RENAL NEOPLASM
  2. SUTENT [Suspect]
     Active Substance: SUNITINIB MALATE
     Indication: RENAL CANCER
     Dosage: 37.5 MG, CYCLIC (ONCE A DAY FOR 4 WEEKS AND THEN 2 WEEKS OFF)
     Route: 048

REACTIONS (8)
  - Eye swelling [Unknown]
  - White blood cell count decreased [Unknown]
  - Eye irritation [Unknown]
  - Fluid retention [Unknown]
  - Thyroid function test [Unknown]
  - Platelet count decreased [Unknown]
  - Disease recurrence [Unknown]
  - Joint swelling [Unknown]

NARRATIVE: CASE EVENT DATE: 202006
